FAERS Safety Report 9371995 (Version 1)
Quarter: 2013Q2

REPORT INFORMATION
  Report Type: Spontaneous
  Country: DE (occurrence: None)
  Receive Date: 20130624
  Receipt Date: 20130624
  Transmission Date: 20140414
  Serious: Yes (Other)
  Sender: FDA-Public Use
  Company Number: USA/GER/13/0030062

PATIENT
  Age: 34 Year
  Sex: Female

DRUGS (7)
  1. CIPROFLOXACIN [Suspect]
     Indication: ANTI-INFECTIVE THERAPY
     Dates: start: 2011
  2. AMPICILLIN [Suspect]
     Indication: ANTI-INFECTIVE THERAPY
     Dates: start: 2011
  3. AMPICILLIN/SULBACTAM [Suspect]
     Indication: ANTI-INFECTIVE THERAPY
     Dates: start: 2011
  4. CEFAZOLIN [Suspect]
     Indication: ANTI-INFECTIVE THERAPY
     Dates: start: 2011
  5. CEFUROXIME [Suspect]
     Indication: ANTI-INFECTIVE THERAPY
     Dates: start: 2011
  6. CLARITHROMYCIN [Suspect]
     Indication: ANTI-INFECTIVE THERAPY
     Dates: start: 2011
  7. PARENTERAL IMMUNOGLOBULIN SUBSTITUTION THERAPY (IMMUNOGLOBULIN) [Concomitant]

REACTIONS (1)
  - Pathogen resistance [None]
